FAERS Safety Report 12583507 (Version 3)
Quarter: 2016Q4

REPORT INFORMATION
  Report Type: Spontaneous
  Country: ES (occurrence: ES)
  Receive Date: 20160722
  Receipt Date: 20161121
  Transmission Date: 20170207
  Serious: Yes (Congenital Anomaly, Other)
  Sender: FDA-Public Use
  Company Number: ES-GILEAD-2016-0224081

PATIENT
  Sex: Female

DRUGS (1)
  1. HARVONI [Suspect]
     Active Substance: LEDIPASVIR\SOFOSBUVIR
     Indication: PRODUCT USED FOR UNKNOWN INDICATION
     Dosage: UNK
     Route: 064
     Dates: start: 20160201, end: 20160425

REACTIONS (2)
  - Congenital cardiovascular anomaly [Not Recovered/Not Resolved]
  - Foetal exposure during pregnancy [Unknown]
